FAERS Safety Report 8458772-5 (Version None)
Quarter: 2012Q2

REPORT INFORMATION
  Report Type: 
  Country: None (occurrence: None)
  Receive Date: 20120615
  Receipt Date: 20120605
  Transmission Date: 20120825
  Serious: Yes (Hospitalization)
  Sender: FDA-Public Use
  Company Number: DKLU1081949

PATIENT
  Age: 65 Year
  Sex: Female

DRUGS (4)
  1. CISORDINOL (ZUCLOPENTHIXOL ACETATE) [Concomitant]
  2. DIAZEPAM [Concomitant]
  3. ONFI [Suspect]
     Indication: EPILEPSY
     Dosage: ORAL
     Route: 048
  4. MIRTAZAPINE [Concomitant]

REACTIONS (4)
  - HYPOVENTILATION [None]
  - BRADYCARDIA [None]
  - DEPRESSED LEVEL OF CONSCIOUSNESS [None]
  - HYPOTHERMIA [None]
